FAERS Safety Report 5271819-2 (Version None)
Quarter: 2007Q1

REPORT INFORMATION
  Report Type: 
  Country: None (occurrence: None)
  Receive Date: 20070321
  Receipt Date: 20070309
  Transmission Date: 20070707
  Serious: Yes (Other)
  Sender: FDA-Public Use
  Company Number: FR-PFIZER INC-2007019136

PATIENT
  Sex: Female

DRUGS (4)
  1. LYRICA [Suspect]
     Indication: EPILEPSY
  2. PHENOBARBITAL TAB [Concomitant]
  3. TEGRETOL [Concomitant]
  4. DIHYDROERGOTAMINE MESYLATE [Concomitant]

REACTIONS (1)
  - EPILEPSY [None]
